FAERS Safety Report 5870597-3 (Version None)
Quarter: 2008Q3

REPORT INFORMATION
  Report Type: 
  Country: None (occurrence: None)
  Receive Date: 20080904
  Receipt Date: 20080828
  Transmission Date: 20090109
  Serious: Yes (Death)
  Sender: FDA-Public Use
  Company Number: A0745979A

PATIENT
  Age: 77 Year
  Sex: Female
  Weight: 84 kg

DRUGS (2)
  1. AVANDIA [Suspect]
     Route: 065
     Dates: start: 19980101
  2. UNSPECIFIED MEDICATIONS [Concomitant]

REACTIONS (2)
  - DEATH [None]
  - MULTI-ORGAN FAILURE [None]
